FAERS Safety Report 9361021 (Version 2)
Quarter: 2014Q1

REPORT INFORMATION
  Report Type: Spontaneous
  Country: US (occurrence: US)
  Receive Date: 20130621
  Receipt Date: 20140305
  Transmission Date: 20141002
  Serious: Yes (Life-Threatening)
  Sender: FDA-Public Use
  Company Number: US-VERTEX PHARMACEUTICALS INC-2013-007083

PATIENT
  Age: 61 Year
  Sex: Male

DRUGS (18)
  1. INCIVEK [Suspect]
     Indication: CHRONIC HEPATITIS C
     Dosage: 375 MG, TID
     Route: 048
     Dates: start: 20120730
  2. PEGASYS [Suspect]
     Indication: CHRONIC HEPATITIS C
     Dosage: 180 ?G, QW
     Route: 058
     Dates: start: 20120730
  3. RIBAVIRIN [Suspect]
     Indication: CHRONIC HEPATITIS C
     Dosage: 1200 MG, QD
     Route: 048
     Dates: start: 20120730
  4. RO 5024048 [Suspect]
     Indication: CHRONIC HEPATITIS C
     Dosage: 1000 MG, BID
     Route: 048
     Dates: start: 20120730
  5. METFORMIN HYDROCHLORIDE [Concomitant]
     Indication: DIABETES MELLITUS
     Dosage: UNK
     Dates: start: 201106, end: 20121001
  6. METFORMIN HYDROCHLORIDE [Concomitant]
     Dosage: UNK
     Dates: start: 20130101, end: 20130513
  7. ASPIRIN [Concomitant]
     Indication: PROPHYLAXIS
     Dosage: UNK
     Dates: start: 201106, end: 20121001
  8. LISINOPRIL [Concomitant]
     Indication: HYPERTENSION
     Dosage: UNK
     Dates: start: 201106
  9. GLYBURIDE [Concomitant]
     Indication: DIABETES MELLITUS
     Dosage: UNK
     Dates: start: 201106
  10. NIACIN [Concomitant]
     Dosage: UNK
     Dates: start: 201106, end: 20121001
  11. PEPCID [Concomitant]
     Indication: NAUSEA
     Dosage: UNK
     Dates: start: 20120806, end: 20130101
  12. AMBIEN [Concomitant]
     Indication: SLEEP DISORDER
     Dosage: UNK
     Dates: start: 20120806, end: 20130101
  13. VENLAFAXINE HYDROCHLORIDE [Concomitant]
     Indication: ANXIETY
     Dosage: UNK
     Dates: start: 20120828, end: 20130221
  14. B12 [Concomitant]
     Indication: VITAMIN SUPPLEMENTATION
     Dosage: UNK
     Dates: start: 20120828, end: 20130501
  15. MIRALAX [Concomitant]
     Indication: CONSTIPATION
     Dosage: UNK
     Dates: start: 20121119, end: 20130401
  16. AMOXICILLIN [Concomitant]
     Indication: TOOTH ABSCESS
     Dosage: UNK
     Dates: start: 20121106, end: 20121110
  17. PEPTO-BISMOL [Concomitant]
     Indication: ABDOMINAL DISTENSION
     Dosage: UNK
     Dates: start: 20121112, end: 20130601
  18. PROZAC [Concomitant]
     Indication: DEPRESSION
     Dosage: UNK
     Dates: start: 20130222

REACTIONS (1)
  - Neutropenia [Recovered/Resolved]
